FAERS Safety Report 16681885 (Version 1)
Quarter: 2019Q3

REPORT INFORMATION
  Report Type: Spontaneous
  Country: FR (occurrence: FR)
  Receive Date: 20190808
  Receipt Date: 20190808
  Transmission Date: 20191004
  Serious: Yes (Hospitalization)
  Sender: FDA-Public Use
  Company Number: FR-AMERICAN REGENT INC-2019001681

PATIENT
  Age: 57 Year
  Sex: Female

DRUGS (3)
  1. EPREX [Suspect]
     Active Substance: ERYTHROPOIETIN
     Indication: ANAEMIA
     Dosage: 40000 INTERNATIONAL UNIT
     Route: 058
     Dates: start: 20160404
  2. AUGMENTIN [Suspect]
     Active Substance: AMOXICILLIN\CLAVULANATE POTASSIUM
     Indication: SEPTIC SHOCK
     Dosage: UNK
     Route: 065
     Dates: start: 20160404
  3. VENOFER [Suspect]
     Active Substance: IRON SUCROSE
     Indication: ANAEMIA
     Dosage: 300 MILLIGRAM
     Route: 042
     Dates: start: 20160404, end: 20160404

REACTIONS (1)
  - Diabetes insipidus [Unknown]

NARRATIVE: CASE EVENT DATE: 20160405
